FAERS Safety Report 5312231-7 (Version None)
Quarter: 2007Q2

REPORT INFORMATION
  Report Type: 
  Country: None (occurrence: None)
  Receive Date: 20070430
  Receipt Date: 20060922
  Transmission Date: 20071010
  Serious: No
  Sender: FDA-Public Use
  Company Number: 2006UW18608

PATIENT
  Age: 98 Year
  Sex: Male

DRUGS (2)
  1. NEXIUM [Suspect]
     Indication: GASTROOESOPHAGEAL REFLUX DISEASE
     Route: 048
  2. COUMADIN [Concomitant]

REACTIONS (2)
  - CONSTIPATION [None]
  - PROTHROMBIN LEVEL INCREASED [None]
